FAERS Safety Report 10224416 (Version 1)
Quarter: 2014Q2

REPORT INFORMATION
  Report Type: Spontaneous
  Country: US (occurrence: US)
  Receive Date: 20140609
  Receipt Date: 20140609
  Transmission Date: 20141212
  Serious: No
  Sender: FDA-Public Use
  Company Number: US-PFIZER INC-2014157558

PATIENT
  Sex: Female

DRUGS (2)
  1. CHANTIX [Suspect]
     Dosage: UNK (WAS SPECIFIED TO BE A LOWER DOSE), UNK
     Dates: start: 201405
  2. CHANTIX [Suspect]
     Dosage: UNK (WAS SPECIFIED TO BE A HIGHER DOSE THEN THE PREVIOUS DOSE), 2X/DAY
     Dates: start: 2014

REACTIONS (2)
  - Nausea [Unknown]
  - Vomiting [Not Recovered/Not Resolved]
